FAERS Safety Report 8177942-7 (Version None)
Quarter: 2012Q1

REPORT INFORMATION
  Report Type: 
  Country: None (occurrence: None)
  Receive Date: 20120130
  Receipt Date: 20110222
  Transmission Date: 20120608
  Serious: Yes (Hospitalization)
  Sender: FDA-Public Use
  Company Number: 027586

PATIENT
  Sex: Male

DRUGS (5)
  1. ZOCOR [Concomitant]
  2. PLAVIX [Concomitant]
  3. ASPIRIN [Concomitant]
  4. KEPPRA [Suspect]
     Dosage: (500 MG) ; (500 MG BID)
     Dates: end: 20110101
  5. KEPPRA [Suspect]
     Dosage: (500 MG) ; (500 MG BID)
     Dates: start: 20110122

REACTIONS (1)
  - CONVULSION [None]
